FAERS Safety Report 5537457-9 (Version None)
Quarter: 2007Q4

REPORT INFORMATION
  Report Type: 
  Country: None (occurrence: None)
  Receive Date: 20071207
  Receipt Date: 20071206
  Transmission Date: 20080405
  Serious: Yes (Hospitalization)
  Sender: FDA-Public Use
  Company Number: US-BRISTOL-MYERS SQUIBB COMPANY-14005979

PATIENT
  Age: 49 Year
  Sex: Male

DRUGS (1)
  1. PRAVACHOL [Suspect]
     Route: 048
     Dates: start: 20071101

REACTIONS (1)
  - HAEMORRHAGE [None]
